FAERS Safety Report 24800430 (Version 1)
Quarter: 2025Q1

REPORT INFORMATION
  Report Type: Spontaneous
  Country: US (occurrence: US)
  Receive Date: 20250102
  Receipt Date: 20250102
  Transmission Date: 20250409
  Serious: No
  Sender: BAYER HEALTHCARE PHARMACEUTICALS INC.
  Company Number: US-BAYER-2024A182873

PATIENT
  Age: 15 Year
  Sex: Female

DRUGS (3)
  1. LAROTRECTINIB [Suspect]
     Active Substance: LAROTRECTINIB
     Indication: Thrombocytopenia
     Dosage: 100 MG, BID
  2. LAROTRECTINIB [Suspect]
     Active Substance: LAROTRECTINIB
     Indication: B-cell type acute leukaemia
  3. LAROTRECTINIB [Suspect]
     Active Substance: LAROTRECTINIB
     Indication: Juvenile xanthogranuloma

REACTIONS (1)
  - Pain [None]
